FAERS Safety Report 14247508 (Version 1)
Quarter: 2017Q4

REPORT INFORMATION
  Report Type: Spontaneous
  Country: US (occurrence: None)
  Receive Date: 20171204
  Receipt Date: 20171204
  Transmission Date: 20180321
  Serious: Yes (Other)
  Sender: FDA-Public Use
  Company Number: None

PATIENT
  Age: 79 Year
  Sex: Female
  Weight: 47.63 kg

DRUGS (11)
  1. CIPROFLOXACIN-CIPROFLOXACIN-CIPROFLOXACIN-CIPROFLOXACIN [Suspect]
     Active Substance: CIPROFLOXACIN HYDROCHLORIDE
     Indication: CYSTITIS
     Dosage: NDC # 250MG - 16714065102 LOT # YS2516005-A STRENGTH 250MG QUANITY 1/D FREQUENCY TID PO ?NDC # 100MG - 5511012506 STRENGTH 100MG, QUANITY 1/D FREQUENCY Q12H PO?
     Route: 048
     Dates: start: 20170530, end: 201707
  2. PLAVIX [Suspect]
     Active Substance: CLOPIDOGREL BISULFATE
  3. TOPROL XL [Concomitant]
     Active Substance: METOPROLOL SUCCINATE
  4. TIMOLOL MAL [Concomitant]
  5. BAYER LOW DOSE ASPIRIN [Concomitant]
  6. GERITOL COMPLETE [Concomitant]
  7. PLAQUENIL [Concomitant]
     Active Substance: HYDROXYCHLOROQUINE SULFATE
  8. LIPITOR [Concomitant]
     Active Substance: ATORVASTATIN CALCIUM
  9. NEURONTIN [Concomitant]
     Active Substance: GABAPENTIN
  10. NIFEDICAL XL [Concomitant]
     Active Substance: NIFEDIPINE
  11. LATANOPROST. [Concomitant]
     Active Substance: LATANOPROST

REACTIONS (11)
  - Therapy change [None]
  - Frustration tolerance decreased [None]
  - Incorrect dose administered [None]
  - Insomnia [None]
  - Joint crepitation [None]
  - Weight decreased [None]
  - Dizziness [None]
  - Musculoskeletal discomfort [None]
  - Nausea [None]
  - Vomiting [None]
  - Decreased appetite [None]

NARRATIVE: CASE EVENT DATE: 20170718
